FAERS Safety Report 5415911-8 (Version None)
Quarter: 2007Q3

REPORT INFORMATION
  Report Type: 
  Country: None (occurrence: None)
  Receive Date: 20070815
  Receipt Date: 20070803
  Transmission Date: 20080115
  Serious: Yes (Other)
  Sender: FDA-Public Use
  Company Number: CH-ELI_LILLY_AND_COMPANY-CH200601001219

PATIENT
  Age: 38 Year
  Sex: Female

DRUGS (3)
  1. FLUCTINE [Suspect]
     Dosage: 20 MG, DAILY (1/D)
     Route: 048
     Dates: end: 20051125
  2. SOMNIUM /SCH/ [Concomitant]
     Dosage: 2 UNK, DAILY (1/D)
  3. STILNOX /SCH/ [Concomitant]
     Dosage: 10 MG, 2/D

REACTIONS (1)
  - DRUG EXPOSURE DURING PREGNANCY [None]
